FAERS Safety Report 5145001-3 (Version None)
Quarter: 2006Q4

REPORT INFORMATION
  Report Type: 
  Country: None (occurrence: None)
  Receive Date: 20061107
  Receipt Date: 20061030
  Transmission Date: 20070319
  Serious: Yes (Hospitalization, Other)
  Sender: FDA-Public Use
  Company Number: FR-BRISTOL-MYERS SQUIBB COMPANY-13564349

PATIENT
  Age: 69 Year
  Sex: Female

DRUGS (7)
  1. GLUCOPHAGE [Suspect]
     Indication: DIABETES MELLITUS NON-INSULIN-DEPENDENT
     Route: 048
     Dates: end: 20061003
  2. STAGID [Suspect]
     Indication: DIABETES MELLITUS NON-INSULIN-DEPENDENT
     Route: 048
     Dates: end: 20061003
  3. ACEBUTOLOL [Suspect]
     Route: 048
     Dates: end: 20061003
  4. RENITEC [Suspect]
     Route: 048
     Dates: end: 20061003
  5. DIGOXIN [Concomitant]
  6. LESCOL [Concomitant]
  7. PREVISCAN [Concomitant]

REACTIONS (5)
  - ABDOMINAL PAIN [None]
  - HYPERKALAEMIA [None]
  - LACTIC ACIDOSIS [None]
  - RENAL FAILURE ACUTE [None]
  - VOMITING [None]
